FAERS Safety Report 10060640 (Version 1)
Quarter: 2014Q2

REPORT INFORMATION
  Report Type: Spontaneous
  Country: NO (occurrence: NO)
  Receive Date: 20140404
  Receipt Date: 20140404
  Transmission Date: 20141212
  Serious: Yes (Life-Threatening)
  Sender: FDA-Public Use
  Company Number: NO-WATSON-2014-06215

PATIENT
  Age: 31 Year
  Sex: Male

DRUGS (2)
  1. FENTANYL (UNKNOWN) [Suspect]
     Indication: POSTOPERATIVE ANALGESIA
     Dosage: 0.1 MG + 0.1 MG WITH 30 MINUTES INTERVAL
     Route: 065
     Dates: start: 20140314, end: 20140314
  2. CATAPRESAN                         /00171101/ [Suspect]
     Indication: POSTOPERATIVE ANALGESIA
     Dosage: 50 ?G, TOTAL (INFUSION STOPPED AFTER 15 MINUTES WHEN A DOSE OF 50 MICROGRAMS WAS ADMINISTERED)
     Route: 041
     Dates: start: 20140314, end: 20140314

REACTIONS (3)
  - Apnoea [Recovered/Resolved]
  - Bradycardia [Recovered/Resolved]
  - Toxicity to various agents [Recovered/Resolved]
